FAERS Safety Report 21984176 (Version 1)
Quarter: 2023Q1

REPORT INFORMATION
  Report Type: Spontaneous
  Country: US (occurrence: None)
  Receive Date: 20230209
  Receipt Date: 20230209
  Transmission Date: 20230418
  Serious: Yes (Hospitalization)
  Sender: FDA-Public Use
  Company Number: None

PATIENT
  Sex: Male

DRUGS (1)
  1. BALVERSA [Suspect]
     Active Substance: ERDAFITINIB
     Indication: Bladder cancer
     Dosage: 4MG DAILY ORAL?
     Route: 048
     Dates: start: 20230104

REACTIONS (4)
  - Similar reaction on previous exposure to drug [None]
  - Therapy interrupted [None]
  - Spinal operation [None]
  - Nail disorder [None]
